FAERS Safety Report 22042124 (Version 1)
Quarter: 2023Q1

REPORT INFORMATION
  Report Type: Spontaneous
  Country: US (occurrence: US)
  Receive Date: 20230227
  Receipt Date: 20230227
  Transmission Date: 20230417
  Serious: No
  Sender: FDA-Public Use
  Company Number: US-ALKERMES INC.-ALK-2023-000765

PATIENT
  Sex: Male

DRUGS (1)
  1. VIVITROL [Suspect]
     Active Substance: NALTREXONE
     Indication: Drug dependence
     Dosage: 380 MILLIGRAM, QMO
     Route: 030
     Dates: start: 20230217

REACTIONS (5)
  - Therapeutic response unexpected [Unknown]
  - Muscle spasms [Recovered/Resolved]
  - Insomnia [Unknown]
  - Mental impairment [Unknown]
  - Decreased appetite [Unknown]
